FAERS Safety Report 25979458 (Version 1)
Quarter: 2025Q4

REPORT INFORMATION
  Report Type: Report from Study
  Country: US (occurrence: None)
  Receive Date: 20251030
  Receipt Date: 20251030
  Transmission Date: 20260118
  Serious: Yes (Other)
  Sender: UCB
  Company Number: US-UCBSA-2025067733

PATIENT
  Age: 21 Year
  Weight: 80 kg

DRUGS (1)
  1. FENFLURAMINE [Suspect]
     Active Substance: FENFLURAMINE
     Indication: Product used for unknown indication
     Dosage: 0.325 MILLIGRAM PER KILOGRAM 26 KILOGRAM PER DAY

REACTIONS (1)
  - Pulmonary valve incompetence [Unknown]
